FAERS Safety Report 14323596 (Version 5)
Quarter: 2018Q4

REPORT INFORMATION
  Report Type: Report from Study
  Country: None (occurrence: BR)
  Receive Date: 20171226
  Receipt Date: 20181029
  Transmission Date: 20190204
  Serious: Yes (Other)
  Sender: FDA-Public Use
  Company Number: BR-ABBVIE-17K-020-2203312-00

PATIENT
  Age: 45 Year
  Sex: Female
  Weight: 69 kg

DRUGS (9)
  1. DICETEL [Concomitant]
     Active Substance: PINAVERIUM BROMIDE
     Indication: IRRITABLE BOWEL SYNDROME
  2. HUMIRA [Suspect]
     Active Substance: ADALIMUMAB
     Indication: SPONDYLITIS
     Route: 058
  3. SULFASALAZINE. [Concomitant]
     Active Substance: SULFASALAZINE
     Indication: SPONDYLITIS
  4. FRONTAL [Concomitant]
     Active Substance: ALPRAZOLAM
     Indication: DEPRESSION
  5. FRONTAL [Concomitant]
     Active Substance: ALPRAZOLAM
     Indication: INSOMNIA
  6. HUMIRA [Suspect]
     Active Substance: ADALIMUMAB
     Indication: AXIAL SPONDYLOARTHRITIS
     Route: 058
     Dates: start: 20171111, end: 201802
  7. DONAREN [Concomitant]
     Active Substance: TRAZODONE HYDROCHLORIDE
     Indication: FIBROMYALGIA
  8. PRED FORT [Concomitant]
     Active Substance: PREDNISOLONE ACETATE
     Indication: UVEITIS
  9. KETOROLAC [Concomitant]
     Active Substance: KETOROLAC\KETOROLAC TROMETHAMINE
     Indication: PAIN

REACTIONS (22)
  - Loss of consciousness [Recovered/Resolved]
  - Injection site pruritus [Recovered/Resolved]
  - Injection site pruritus [Recovering/Resolving]
  - Injection site erythema [Recovered/Resolved]
  - Fatigue [Not Recovered/Not Resolved]
  - Injection site induration [Recovered/Resolved]
  - Injection site mass [Recovered/Resolved]
  - Injection site discolouration [Recovered/Resolved]
  - Speech disorder [Recovered/Resolved]
  - Injection site swelling [Recovered/Resolved]
  - Injection site swelling [Recovering/Resolving]
  - Injection site pruritus [Unknown]
  - Choking [Recovered/Resolved]
  - Injection site pruritus [Recovered/Resolved]
  - Application site hypersensitivity [Not Recovered/Not Resolved]
  - Injection site pruritus [Recovered/Resolved]
  - Injection site pruritus [Not Recovered/Not Resolved]
  - Injection site induration [Recovering/Resolving]
  - Injection site erythema [Recovered/Resolved]
  - Injection site pain [Recovered/Resolved]
  - Injection site erythema [Recovered/Resolved]
  - Gaze palsy [Recovered/Resolved]

NARRATIVE: CASE EVENT DATE: 201711
